FAERS Safety Report 13943609 (Version 3)
Quarter: 2018Q1

REPORT INFORMATION
  Report Type: Report from Study
  Country: GB (occurrence: GB)
  Receive Date: 20170907
  Receipt Date: 20180309
  Transmission Date: 20180508
  Serious: No
  Sender: FDA-Public Use
  Company Number: GB-AMGEN-GBRCT2017132758

PATIENT
  Age: 72 Year
  Sex: Female
  Weight: 83.2 kg

DRUGS (21)
  1. BLINATUMOMAB [Suspect]
     Active Substance: BLINATUMOMAB
     Dosage: 112 UG, QD
     Route: 042
     Dates: start: 20170515, end: 20170525
  2. CO-AMOXICLAV [Concomitant]
     Active Substance: AMOXICILLIN\CLAVULANIC ACID
     Indication: LOWER RESPIRATORY TRACT INFECTION
  3. APIXABAN [Concomitant]
     Active Substance: APIXABAN
     Indication: ATRIAL FIBRILLATION
     Dosage: 5 MG, BID
     Route: 048
     Dates: start: 20170525
  4. INCRUSE ELLIPTA [Concomitant]
     Active Substance: UMECLIDINIUM BROMIDE
     Indication: DYSPNOEA
     Dosage: 65 MUG, QD
     Route: 050
     Dates: start: 2017
  5. RELVAR ELLIPTA [Concomitant]
     Active Substance: FLUTICASONE FUROATE\VILANTEROL TRIFENATATE
     Indication: DYSPNOEA
     Dosage: 0.2 MUG, QD
     Route: 050
     Dates: start: 2017
  6. OMEPRAZOLE. [Concomitant]
     Active Substance: OMEPRAZOLE
     Indication: GASTROOESOPHAGEAL REFLUX DISEASE
     Dosage: 20 MG, QD
     Route: 048
     Dates: start: 2017
  7. BLINATUMOMAB [Suspect]
     Active Substance: BLINATUMOMAB
     Dosage: 28 UG, QD
     Route: 042
     Dates: start: 20170426, end: 20170428
  8. BLINATUMOMAB [Suspect]
     Active Substance: BLINATUMOMAB
     Dosage: 9 UG, QD
     Route: 042
     Dates: start: 20170501, end: 20170508
  9. BLINATUMOMAB [Suspect]
     Active Substance: BLINATUMOMAB
     Dosage: 28 UG, QD
     Route: 042
     Dates: start: 20170606, end: 20170627
  10. BLINATUMOMAB [Suspect]
     Active Substance: BLINATUMOMAB
     Dosage: 28 UG, QD
     Route: 042
     Dates: start: 20170811
  11. CO-AMOXICLAV [Concomitant]
     Active Substance: AMOXICILLIN\CLAVULANIC ACID
     Indication: LUNG INFECTION
     Dosage: 625- 626 MG, TID
     Route: 048
     Dates: start: 20170512, end: 20170518
  12. DEXAMETHASONE. [Concomitant]
     Active Substance: DEXAMETHASONE
     Indication: CONFUSIONAL STATE
     Dosage: 1- 20 MG, QD
     Dates: start: 20170519
  13. BLINATUMOMAB [Suspect]
     Active Substance: BLINATUMOMAB
     Indication: NON-HODGKIN^S LYMPHOMA
     Dosage: 9 UG, QD
     Route: 042
     Dates: start: 20170419, end: 20170426
  14. BLINATUMOMAB [Suspect]
     Active Substance: BLINATUMOMAB
     Dosage: 28 UG, QD
     Route: 042
     Dates: start: 20170508, end: 20170515
  15. DIGOXIN. [Concomitant]
     Active Substance: DIGOXIN
     Indication: ATRIAL FIBRILLATION
     Dosage: 500 MUG, ONE TIME DOSE
     Route: 042
     Dates: start: 20170525, end: 20170731
  16. BLINATUMOMAB [Suspect]
     Active Substance: BLINATUMOMAB
     Dosage: 9 UG, QD
     Route: 042
     Dates: start: 20170725, end: 20170810
  17. SENNA [Concomitant]
     Active Substance: SENNA LEAF\SENNOSIDES\SENNOSIDES A AND B
     Dosage: 7.5 MG, UNK
     Route: 048
     Dates: start: 20170516, end: 20170516
  18. BISOPROLOL [Concomitant]
     Active Substance: BISOPROLOL
     Indication: HYPERTENSION
     Dosage: 2.5 - 5 MG, QD
     Route: 048
     Dates: start: 2017, end: 20170803
  19. CARBOCISTEINE [Concomitant]
     Active Substance: CARBOCYSTEINE
     Indication: CHRONIC OBSTRUCTIVE PULMONARY DISEASE
  20. DEXAMETHASONE. [Concomitant]
     Active Substance: DEXAMETHASONE
     Indication: PROPHYLAXIS
  21. CARBOCISTEINE [Concomitant]
     Active Substance: CARBOCYSTEINE
     Indication: DYSPNOEA
     Dosage: 500- 750 MG, BID
     Route: 048
     Dates: start: 2017

REACTIONS (1)
  - Transplant evaluation [Recovered/Resolved]

NARRATIVE: CASE EVENT DATE: 20170718
